FAERS Safety Report 4480362-X (Version None)
Quarter: 2004Q4

REPORT INFORMATION
  Report Type: 
  Country: None (occurrence: None)
  Receive Date: 20041018
  Receipt Date: 20041007
  Transmission Date: 20050328
  Serious: Yes (Hospitalization, Other)
  Sender: FDA-Public Use
  Company Number: HQWYE607007OCT04

PATIENT
  Age: 66 Year
  Sex: Female

DRUGS (9)
  1. SUPRAX [Suspect]
     Indication: PHARYNGITIS
     Dosage: 400 MG DAILY ORAL
     Route: 048
     Dates: start: 20040615, end: 20040618
  2. ACERCOMP (HYDROCHLOROTHIAZIDE/LISINOPRIL) [Concomitant]
  3. LERCANIDIPINE [Concomitant]
  4. DIGITOXIN TAB [Concomitant]
  5. ERBANTIL (URAPIDIL) [Concomitant]
  6. FALITHROM (PHENPROCOUMON) [Concomitant]
  7. LOVASTATIN [Concomitant]
  8. SPIRO COMP. (FUROSEMIDE/SPIRONOLACTONE) [Concomitant]
  9. BISOPROLOL  RATIOPHARM  (BISOPROLOL) [Concomitant]

REACTIONS (9)
  - BLOOD ALKALINE PHOSPHATASE ABNORMAL [None]
  - BLOOD CREATININE INCREASED [None]
  - BLOOD GLUCOSE INCREASED [None]
  - BLOOD POTASSIUM INCREASED [None]
  - BLOOD SODIUM DECREASED [None]
  - DIVERTICULUM INTESTINAL [None]
  - ENTEROCOLITIS [None]
  - HAEMATOCRIT DECREASED [None]
  - HAEMOGLOBIN DECREASED [None]
